FAERS Safety Report 6061534-X (Version None)
Quarter: 2009Q1

REPORT INFORMATION
  Report Type: 
  Country: None (occurrence: None)
  Receive Date: 20090202
  Receipt Date: 20090123
  Transmission Date: 20090719
  Serious: Yes (Death)
  Sender: FDA-Public Use
  Company Number: AT-ABBOTT-09P-009-0500880-00

PATIENT
  Sex: Male

DRUGS (1)
  1. TRENANTONE [Suspect]
     Indication: PROSTATE CANCER METASTATIC
     Dates: start: 20020601

REACTIONS (1)
  - DEATH [None]
